FAERS Safety Report 10247401 (Version 1)
Quarter: 2014Q1

REPORT INFORMATION
  Report Type: Spontaneous
  Country: US (occurrence: None)
  Receive Date: 20140306
  Receipt Date: 20140306
  Transmission Date: 20141002
  Serious: Yes (Other)
  Sender: FDA-Public Use
  Company Number: 163-21880-13033045

PATIENT
  Age: 65 Year
  Sex: Male
  Weight: 90.27 kg

DRUGS (2)
  1. REVLIMID (LENALIDOMIDE) (10 MILLIGRAM, CAPSULES) [Suspect]
     Indication: LYMPHOMA
     Dosage: 20 MG, 21 IN 21 D, PO
     Route: 048
     Dates: start: 20121227
  2. RITUXIMAB (RITUXIMAB) (UNKNOWN) [Concomitant]

REACTIONS (2)
  - Neutrophil count decreased [None]
  - Laboratory test abnormal [None]
